FAERS Safety Report 5832994-1 (Version None)
Quarter: 2008Q3

REPORT INFORMATION
  Report Type: 
  Country: None (occurrence: None)
  Receive Date: 20080804
  Receipt Date: 20080729
  Transmission Date: 20090109
  Serious: Yes (Hospitalization)
  Sender: FDA-Public Use
  Company Number: FR-MERCK-0807FRA00103

PATIENT
  Age: 73 Year
  Sex: Female

DRUGS (10)
  1. JANUVIA [Suspect]
     Indication: TYPE 2 DIABETES MELLITUS
     Route: 048
     Dates: start: 20080626, end: 20080705
  2. METFORMIN [Concomitant]
     Indication: TYPE 2 DIABETES MELLITUS
     Route: 048
     Dates: end: 20080705
  3. CLOXACILLIN SODIUM [Concomitant]
     Indication: DIABETIC FOOT
     Route: 065
     Dates: start: 20080501, end: 20080705
  4. ENOXAPARIN SODIUM [Concomitant]
     Indication: THROMBOSIS PROPHYLAXIS
     Route: 065
  5. PERINDOPRIL [Concomitant]
     Indication: HYPERTENSION
     Route: 048
     Dates: start: 20070101, end: 20080705
  6. SPIRONOLACTONE [Concomitant]
     Indication: HYPERTENSION
     Route: 048
     Dates: start: 20070101, end: 20080705
  7. FUROSEMIDE [Concomitant]
     Indication: HYPERTENSION
     Route: 048
     Dates: start: 20070101, end: 20080705
  8. MORPHINE [Concomitant]
     Indication: SKIN ULCER
     Route: 048
     Dates: start: 20080501, end: 20080705
  9. PREGABALIN [Concomitant]
     Indication: NEURALGIA
     Route: 048
     Dates: end: 20080705
  10. GLIMEPIRIDE [Concomitant]
     Indication: TYPE 2 DIABETES MELLITUS
     Route: 048
     Dates: end: 20060601

REACTIONS (1)
  - RENAL FAILURE ACUTE [None]
